FAERS Safety Report 8188898-5 (Version None)
Quarter: 2012Q1

REPORT INFORMATION
  Report Type: 
  Country: None (occurrence: None)
  Receive Date: 20120306
  Receipt Date: 20120302
  Transmission Date: 20120608
  Serious: Yes (Disabling)
  Sender: FDA-Public Use
  Company Number: GB-MERCK-1203GBR00016

PATIENT
  Age: 72 Year
  Sex: Female
  Weight: 83 kg

DRUGS (14)
  1. HYPROMELLOSE [Concomitant]
     Route: 065
     Dates: start: 20111107
  2. PREDNISOLONE [Concomitant]
     Route: 065
     Dates: start: 20111019
  3. BECLOMETHASONE DIPROPIONATE [Concomitant]
     Route: 065
     Dates: start: 20111107
  4. ZOCOR [Suspect]
     Route: 048
     Dates: start: 20111027
  5. FOLIC ACID [Concomitant]
     Route: 065
     Dates: start: 20111107
  6. LANSOPRAZOLE [Concomitant]
     Route: 065
     Dates: start: 20111229
  7. DICLOFENAC SODIUM [Concomitant]
     Route: 065
     Dates: start: 20111107
  8. ALENDRONATE SODIUM [Concomitant]
     Route: 048
     Dates: start: 20111107
  9. BENDROFLUMETHIAZIDE [Concomitant]
     Route: 065
     Dates: start: 20111107
  10. CALCIUM CARBONATE [Concomitant]
     Route: 065
     Dates: start: 20111108
  11. METHOTREXATE [Concomitant]
     Route: 065
     Dates: start: 20111107
  12. ALBUTEROL SULFATE [Concomitant]
     Route: 065
     Dates: start: 20111107
  13. BECLOMETHASONE DIPROPIONATE [Concomitant]
     Route: 065
     Dates: start: 20120209
  14. VALSARTAN [Concomitant]
     Route: 065
     Dates: start: 20111107

REACTIONS (1)
  - PAIN [None]
